FAERS Safety Report 16272196 (Version 2)
Quarter: 2019Q2

REPORT INFORMATION
  Report Type: Report from Study
  Country: US (occurrence: US)
  Receive Date: 20190503
  Receipt Date: 20190506
  Transmission Date: 20190711
  Serious: Yes (Hospitalization)
  Sender: FDA-Public Use
  Company Number: US-GILEAD-2019-0405793

PATIENT
  Age: 15 Year
  Sex: Female

DRUGS (17)
  1. FISH OIL [Concomitant]
     Active Substance: FISH OIL
  2. FOLIC ACID. [Concomitant]
     Active Substance: FOLIC ACID
  3. URSODIOL. [Concomitant]
     Active Substance: URSODIOL
  4. HUMALOG [Concomitant]
     Active Substance: INSULIN LISPRO
  5. ORKAMBI [Concomitant]
     Active Substance: IVACAFTOR\LUMACAFTOR
  6. KITABIS PAK [Concomitant]
     Active Substance: TOBRAMYCIN
  7. LANTUS [Concomitant]
     Active Substance: INSULIN GLARGINE
  8. AZTREONAM LYSINE [Suspect]
     Active Substance: AZTREONAM LYSINE
     Indication: CYSTIC FIBROSIS
     Dosage: 75 MG, TID
     Dates: start: 20130803
  9. METHOTREXATE. [Concomitant]
     Active Substance: METHOTREXATE
  10. PROVENTIL [Concomitant]
     Active Substance: ALBUTEROL
  11. HYPERSAL [Concomitant]
     Active Substance: SODIUM CHLORIDE
  12. MELATONIN [Concomitant]
     Active Substance: MELATONIN
  13. SODIUM CHLORIDE. [Concomitant]
     Active Substance: SODIUM CHLORIDE
  14. AMOXICILLIN. [Concomitant]
     Active Substance: AMOXICILLIN
  15. CETIRIZINE [Concomitant]
     Active Substance: CETIRIZINE HYDROCHLORIDE
  16. DEKAS [Concomitant]
  17. RANITIDINE. [Concomitant]
     Active Substance: RANITIDINE

REACTIONS (2)
  - Product dose omission [Recovered/Resolved]
  - Dyspnoea [Not Recovered/Not Resolved]

NARRATIVE: CASE EVENT DATE: 20190428
